FAERS Safety Report 11716947 (Version 3)
Quarter: 2015Q4

REPORT INFORMATION
  Report Type: Spontaneous
  Country: US (occurrence: US)
  Receive Date: 20151104
  Receipt Date: 20151120
  Transmission Date: 20160304
  Serious: No
  Sender: FDA-Public Use
  Company Number: US-ELI_LILLY_AND_COMPANY-US201109002100

PATIENT
  Age: 53 Year
  Sex: Female

DRUGS (12)
  1. FORTEO [Suspect]
     Active Substance: TERIPARATIDE
     Dosage: 20 UG, QD
  2. DIOVAN [Concomitant]
     Active Substance: VALSARTAN
     Indication: BLOOD PRESSURE ABNORMAL
     Dosage: UNK
  3. COENZYME Q10 [Concomitant]
     Active Substance: UBIDECARENONE
     Indication: CARDIAC DISORDER
     Dosage: 200 MG, UNK
  4. FORTEO [Suspect]
     Active Substance: TERIPARATIDE
     Dosage: 20 UG, QD
  5. OMEGA 3 FISH OIL [Concomitant]
     Active Substance: FISH OIL\OMEGA-3 FATTY ACIDS
     Indication: CARDIAC DISORDER
  6. FORTEO [Suspect]
     Active Substance: TERIPARATIDE
     Indication: OSTEOPOROSIS
     Dosage: 20 UG, QD
     Dates: start: 2011
  7. FORTEO [Suspect]
     Active Substance: TERIPARATIDE
     Dosage: 20 UG, QD
  8. FORTEO [Suspect]
     Active Substance: TERIPARATIDE
     Dosage: 20 UG, QD
  9. VITAMIN D3 [Concomitant]
     Active Substance: CHOLECALCIFEROL
     Dosage: 10000 IU, UNK
  10. ASPIRIN. [Concomitant]
     Active Substance: ASPIRIN
     Indication: BLOOD PRESSURE INCREASED
     Dosage: 2 DF, QD
     Route: 048
  11. FORTEO [Suspect]
     Active Substance: TERIPARATIDE
     Dosage: 20 UG, QD
  12. VITAMIN A [Concomitant]
     Active Substance: VITAMIN A
     Dosage: 8000 U, UNK

REACTIONS (33)
  - Fatigue [Recovered/Resolved]
  - Malaise [Unknown]
  - Somnolence [Unknown]
  - Decreased interest [Unknown]
  - Weight decreased [Unknown]
  - Neck pain [Unknown]
  - Fatigue [Unknown]
  - Back pain [Not Recovered/Not Resolved]
  - Dysstasia [Unknown]
  - Pain [Recovering/Resolving]
  - Pollakiuria [Recovered/Resolved]
  - Limb discomfort [Unknown]
  - Depressed mood [Unknown]
  - Fall [Recovered/Resolved]
  - Neck pain [Unknown]
  - Spinal pain [Recovering/Resolving]
  - Crying [Unknown]
  - Gastroenteritis viral [Recovered/Resolved]
  - Chest discomfort [Unknown]
  - Pain in extremity [Recovering/Resolving]
  - Arthritis [Unknown]
  - Pollakiuria [Unknown]
  - Incorrect product storage [Unknown]
  - Musculoskeletal stiffness [Unknown]
  - Pain in extremity [Unknown]
  - Injection site pain [Unknown]
  - Dyspnoea [Unknown]
  - Blood pressure increased [Unknown]
  - Wrong technique in product usage process [Unknown]
  - Renal impairment [Recovered/Resolved]
  - Renal pain [Recovered/Resolved]
  - Abdominal pain upper [Unknown]
  - Diarrhoea [Unknown]

NARRATIVE: CASE EVENT DATE: 20120128
